FAERS Safety Report 9585449 (Version 2)
Quarter: 2013Q4

REPORT INFORMATION
  Report Type: Spontaneous
  Country: US (occurrence: US)
  Receive Date: 20131003
  Receipt Date: 20131022
  Transmission Date: 20140711
  Serious: Yes (Other)
  Sender: FDA-Public Use
  Company Number: US-AMGEN-USASP2013067833

PATIENT
  Age: 69 Year
  Sex: Male
  Weight: 73.02 kg

DRUGS (5)
  1. PROLIA [Suspect]
     Indication: OSTEOPOROSIS
     Dosage: 60 MG, UNK
     Route: 058
     Dates: start: 20130906
  2. BENICAR [Concomitant]
     Indication: HYPERTENSION
     Dosage: 40 MG, QD
     Route: 048
  3. NEXIUM                             /01479302/ [Concomitant]
     Indication: GASTROOESOPHAGEAL REFLUX DISEASE
     Dosage: 40 MG, QD
     Route: 048
  4. TRAMADOL [Concomitant]
     Indication: PAIN
     Dosage: 50 MG, TID
  5. ROBAXIN [Concomitant]
     Indication: PAIN
     Dosage: 750 MG, TID
     Route: 048

REACTIONS (1)
  - Psoriasis [Recovered/Resolved]
